FAERS Safety Report 10245575 (Version 4)
Quarter: 2014Q3

REPORT INFORMATION
  Report Type: Report from Study
  Country: DE (occurrence: DE)
  Receive Date: 20140619
  Receipt Date: 20140808
  Transmission Date: 20150326
  Serious: Yes (Death, Hospitalization)
  Sender: FDA-Public Use
  Company Number: DE-ROCHE-1420520

PATIENT
  Age: 50 Year
  Sex: Female
  Weight: 42.5 kg

DRUGS (3)
  1. VEMURAFENIB [Suspect]
     Active Substance: VEMURAFENIB
     Indication: METASTATIC MALIGNANT MELANOMA
     Dosage: DATE OF LAST DOSE PRIOT TO SAE ON 14/JUN/2014
     Route: 048
     Dates: start: 20140521
  2. VEMURAFENIB [Suspect]
     Active Substance: VEMURAFENIB
     Dosage: DATE OF LAST DOSE PRIOT TO SAE ON 16/JUN/2014
     Route: 048
     Dates: start: 20140521
  3. VEMURAFENIB [Suspect]
     Active Substance: VEMURAFENIB
     Dosage: DATE OF LAST DOSE PRIOT TO SAE ON 17/JUN/2014
     Route: 048
     Dates: start: 20140521

REACTIONS (5)
  - Toxic epidermal necrolysis [Fatal]
  - Erythema multiforme [Not Recovered/Not Resolved]
  - Aspartate aminotransferase increased [Recovered/Resolved]
  - Alanine aminotransferase increased [Recovered/Resolved]
  - Blood bilirubin increased [Recovered/Resolved]

NARRATIVE: CASE EVENT DATE: 20140614
